FAERS Safety Report 5090551-1 (Version None)
Quarter: 2006Q3

REPORT INFORMATION
  Report Type: 
  Country: None (occurrence: None)
  Receive Date: 20060828
  Receipt Date: 20060602
  Transmission Date: 20061208
  Serious: No
  Sender: FDA-Public Use
  Company Number: US-GLAXOSMITHKLINE-A0607741A

PATIENT
  Sex: Female

DRUGS (11)
  1. WELLBUTRIN XL [Suspect]
     Indication: DEPRESSION
     Dosage: 150MG PER DAY
     Route: 048
  2. LACTULOSE [Concomitant]
  3. FUROSEMIDE [Concomitant]
  4. NEXIUM [Concomitant]
  5. SPIRONOLACTONE [Concomitant]
  6. MEPHYTON [Concomitant]
  7. PROPRANOLOL [Concomitant]
  8. POTASSIUM CL [Concomitant]
  9. VITAMIN [Concomitant]
  10. MILK THISTLE [Concomitant]
  11. UNKNOWN MEDICATION [Concomitant]

REACTIONS (1)
  - HYPOAESTHESIA [None]
